FAERS Safety Report 5502054-8 (Version None)
Quarter: 2007Q4

REPORT INFORMATION
  Report Type: 
  Country: None (occurrence: None)
  Receive Date: 20071030
  Receipt Date: 20070608
  Transmission Date: 20080405
  Serious: No
  Sender: FDA-Public Use
  Company Number: A0654849A

PATIENT
  Age: 41 Year
  Sex: Female

DRUGS (3)
  1. IMITREX [Suspect]
     Indication: MIGRAINE
     Route: 045
  2. DURADRIN [Concomitant]
  3. VICODIN [Concomitant]

REACTIONS (3)
  - DRUG INEFFECTIVE [None]
  - DYSGEUSIA [None]
  - PHARMACEUTICAL PRODUCT COMPLAINT [None]
